FAERS Safety Report 10462528 (Version 8)
Quarter: 2015Q3

REPORT INFORMATION
  Report Type: Report from Study
  Country: US (occurrence: US)
  Receive Date: 20140918
  Receipt Date: 20150903
  Transmission Date: 20151125
  Serious: Yes (Other)
  Sender: FDA-Public Use
  Company Number: US-SA-2014SA128304

PATIENT
  Age: 51 Year
  Sex: Female

DRUGS (15)
  1. AUBAGIO [Suspect]
     Active Substance: TERIFLUNOMIDE
     Indication: MULTIPLE SCLEROSIS
     Dosage: STRENGTH: 14 MG
     Route: 048
  2. AUBAGIO [Suspect]
     Active Substance: TERIFLUNOMIDE
     Indication: MULTIPLE SCLEROSIS
     Dosage: STRENGTH: 14 MG
     Route: 048
     Dates: start: 20140913
  3. COPAXONE [Concomitant]
     Active Substance: GLATIRAMER ACETATE
     Indication: MULTIPLE SCLEROSIS
     Dates: start: 20100101, end: 20140811
  4. CYMBALTA [Concomitant]
     Active Substance: DULOXETINE HYDROCHLORIDE
  5. HYDROCODONE/PARACETAMOL [Concomitant]
  6. HUMALOG [Concomitant]
     Active Substance: INSULIN LISPRO
  7. ZOCOR [Concomitant]
     Active Substance: SIMVASTATIN
  8. ASPIRIN. [Concomitant]
     Active Substance: ASPIRIN
  9. BUSPIRONE [Concomitant]
     Active Substance: BUSPIRONE HYDROCHLORIDE
  10. AUBAGIO [Suspect]
     Active Substance: TERIFLUNOMIDE
     Indication: MULTIPLE SCLEROSIS
     Dosage: STRENGTH: 7 MG
     Route: 048
     Dates: start: 20140816, end: 20140912
  11. ATENOLOL. [Concomitant]
     Active Substance: ATENOLOL
  12. VASOTEC [Concomitant]
     Active Substance: ENALAPRIL MALEATE
  13. XANAX [Concomitant]
     Active Substance: ALPRAZOLAM
  14. PREMARIN [Concomitant]
     Active Substance: ESTROGENS, CONJUGATED
  15. INSULIN PUMP [Concomitant]
     Active Substance: INSULIN NOS

REACTIONS (16)
  - Memory impairment [Unknown]
  - Hypoaesthesia [Unknown]
  - Musculoskeletal pain [Unknown]
  - Central nervous system lesion [Unknown]
  - Head discomfort [Unknown]
  - Pain in extremity [Unknown]
  - Intervertebral disc protrusion [Unknown]
  - Pain in extremity [Unknown]
  - Limb discomfort [Unknown]
  - Liver function test abnormal [Unknown]
  - Arthritis [Unknown]
  - Nasopharyngitis [Recovering/Resolving]
  - Alopecia [Recovering/Resolving]
  - Alopecia [Unknown]
  - Arthralgia [Unknown]
  - Gait disturbance [Unknown]

NARRATIVE: CASE EVENT DATE: 201408
